FAERS Safety Report 6442363-1 (Version None)
Quarter: 2009Q4

REPORT INFORMATION
  Report Type: 
  Country: None (occurrence: None)
  Receive Date: 20091112
  Receipt Date: 20091102
  Transmission Date: 20100525
  Serious: Yes (Life-Threatening, Hospitalization, Other)
  Sender: FDA-Public Use
  Company Number: 2009AL006981

PATIENT
  Age: 7 Month
  Sex: Male
  Weight: 7.7 kg

DRUGS (3)
  1. INFANTS' APAP DROPS (ACETAMINOPHEN) (ALPHARMA) [Suspect]
     Indication: INFLUENZA
     Dosage: 1804 MG;PO
     Route: 048
  2. INFANTS' APAP DROPS (ACETAMINOPHEN) (ALPHARMA) [Suspect]
     Indication: PYREXIA
     Dosage: 1804 MG;PO
     Route: 048
  3. IBUPROFEN ORAL SUSPENSION USP, 100 MG/5 ML (OTC) (ALPHARMA) [Suspect]

REACTIONS (11)
  - ACCIDENTAL OVERDOSE [None]
  - ALANINE AMINOTRANSFERASE INCREASED [None]
  - ASPARTATE AMINOTRANSFERASE INCREASED [None]
  - BLOOD ALKALINE PHOSPHATASE INCREASED [None]
  - BLOOD CHLORIDE INCREASED [None]
  - BLOOD UREA DECREASED [None]
  - HEART RATE INCREASED [None]
  - HEPATOTOXICITY [None]
  - HYPOGLYCAEMIA [None]
  - RESPIRATORY RATE INCREASED [None]
  - VOMITING [None]
